FAERS Safety Report 23197236 (Version 2)
Quarter: 2023Q4

REPORT INFORMATION
  Report Type: Spontaneous
  Country: JP (occurrence: JP)
  Receive Date: 20231117
  Receipt Date: 20231227
  Transmission Date: 20240109
  Serious: Yes (Other)
  Sender: FDA-Public Use
  Company Number: JP-UCBJ-CD202309295UCBPHAPROD

PATIENT
  Age: 31 Year
  Sex: Female
  Weight: 48.9 kg

DRUGS (8)
  1. CIMZIA [Suspect]
     Active Substance: CERTOLIZUMAB PEGOL
     Indication: Behcet^s syndrome
     Dosage: 400 MILLIGRAM, EV 2 WEEKS(QOW)
     Route: 058
     Dates: start: 20230612
  2. CIMZIA [Suspect]
     Active Substance: CERTOLIZUMAB PEGOL
     Indication: Off label use
  3. PREDONINE [Concomitant]
     Active Substance: PREDNISOLONE
     Indication: Behcet^s syndrome
     Dosage: 12.5 MILLIGRAM EVERY 12 HOURS
     Route: 048
     Dates: start: 20230508
  4. PENTASA [Concomitant]
     Active Substance: MESALAMINE
     Indication: Behcet^s syndrome
     Dosage: 2 GRAM, ONCE DAILY (QD)
     Route: 048
     Dates: start: 20230508
  5. NEXIUM [Concomitant]
     Active Substance: ESOMEPRAZOLE MAGNESIUM
     Indication: Behcet^s syndrome
     Dosage: 20 MILLIGRAM, ONCE DAILY (QD)
     Route: 048
     Dates: start: 20230508
  6. REBAMIPIDE [Concomitant]
     Active Substance: REBAMIPIDE
     Indication: Behcet^s syndrome
     Dosage: 100 MILLIGRAM, ONCE DAILY (QD)
     Route: 048
     Dates: start: 20230508
  7. MIYA-BM [Concomitant]
     Active Substance: CLOSTRIDIUM BUTYRICUM SPORES STRAIN M-55
     Indication: Behcet^s syndrome
     Dosage: 40 MILLIGRAM EVERY 8 HOURS
     Route: 048
     Dates: start: 20230508
  8. FERRUM [Concomitant]
     Indication: Behcet^s syndrome
     Dosage: 100 MILLIGRAM, ONCE DAILY (QD)
     Route: 048
     Dates: start: 20230508

REACTIONS (4)
  - Caesarean section [Unknown]
  - Off label use [Unknown]
  - Maternal exposure during pregnancy [Unknown]
  - Maternal exposure during breast feeding [Unknown]

NARRATIVE: CASE EVENT DATE: 20230101
